FAERS Safety Report 7126546-3 (Version None)
Quarter: 2010Q4

REPORT INFORMATION
  Report Type: 
  Country: None (occurrence: None)
  Receive Date: 20101129
  Receipt Date: 20101118
  Transmission Date: 20110411
  Serious: Yes (Other)
  Sender: FDA-Public Use
  Company Number: US-PFIZER INC-2010125243

PATIENT
  Sex: Female
  Weight: 70.295 kg

DRUGS (11)
  1. LYRICA [Suspect]
     Indication: NEUROPATHY PERIPHERAL
     Dosage: 150 MG, UNK
     Route: 048
  2. LYRICA [Suspect]
     Dosage: 300 MG, UNK
  3. LYRICA [Suspect]
     Dosage: 225 MG, UNK
  4. LYRICA [Suspect]
     Dosage: 75 MG, 4X/DAY
  5. EFFEXOR XR [Concomitant]
     Indication: DEPRESSION
     Dosage: 150 MG, 1X/DAY
     Route: 048
     Dates: start: 20000101
  6. ACYCLOVIR SODIUM [Concomitant]
     Indication: HERPES VIRUS INFECTION
     Dosage: 800 MG, 1X/DAY
     Route: 048
  7. MORPHINE SULFATE [Concomitant]
     Indication: BACK PAIN
     Dosage: 200 MG, 3X/DAY
     Route: 048
  8. OXYCODONE [Concomitant]
     Indication: BACK PAIN
     Dosage: 5 MG, EVERY 5 HOURS
     Route: 048
  9. OXYCODONE HCL AND ACETAMINOPHEN [Concomitant]
     Indication: PAIN
     Dosage: 10/325 MG AS NEEDED
     Route: 048
  10. ZANAFLEX [Concomitant]
     Indication: NEURALGIA
     Dosage: AS NEEDED
  11. CALTRATE [Concomitant]
     Dosage: 800 MG, 1X/DAY
     Route: 048

REACTIONS (1)
  - WITHDRAWAL SYNDROME [None]
